FAERS Safety Report 8545641-5 (Version None)
Quarter: 2012Q3

REPORT INFORMATION
  Report Type: 
  Country: None (occurrence: None)
  Receive Date: 20120718
  Receipt Date: 20120718
  Transmission Date: 20120928
  Serious: Yes (Other)
  Sender: FDA-Public Use
  Company Number: None

PATIENT
  Sex: Female
  Weight: 83.4619 kg

DRUGS (1)
  1. WELLBUTRIN XL [Suspect]
     Dosage: 300MG 1 DAILY PO
     Route: 048

REACTIONS (1)
  - DRUG INEFFECTIVE [None]
